FAERS Safety Report 7323598-2 (Version None)
Quarter: 2011Q1

REPORT INFORMATION
  Report Type: 
  Country: None (occurrence: None)
  Receive Date: 20110301
  Receipt Date: 20110223
  Transmission Date: 20110831
  Serious: Yes (Death, Life-Threatening, Other)
  Sender: FDA-Public Use
  Company Number: JP-PFIZER INC-2008097290

PATIENT
  Age: 47 Year
  Sex: Male
  Weight: 54 kg

DRUGS (5)
  1. SUNITINIB MALATE [Suspect]
     Indication: GASTROINTESTINAL STROMAL TUMOUR
     Dosage: 50 MG, 1X/DAY
     Dates: start: 20080707, end: 20081214
  2. SUNITINIB MALATE [Suspect]
     Dosage: 25 MG, 1X/DAY
     Route: 048
     Dates: start: 20090722, end: 20090818
  3. SUNITINIB MALATE [Suspect]
     Dosage: 25 MG, 1X/DAY
     Route: 048
     Dates: start: 20090907, end: 20090914
  4. SUNITINIB MALATE [Suspect]
     Dosage: 25 MG, 1X/DAY
     Route: 048
     Dates: start: 20090608, end: 20090705
  5. LASIX [Concomitant]
     Indication: PLEURAL EFFUSION
     Dosage: 40 MG, 1X/DAY
     Route: 048

REACTIONS (4)
  - TUMOUR HAEMORRHAGE [None]
  - DISEASE PROGRESSION [None]
  - HAEMORRHAGE [None]
  - GASTROINTESTINAL STROMAL TUMOUR [None]
